FAERS Safety Report 7294683-9 (Version None)
Quarter: 2011Q1

REPORT INFORMATION
  Report Type: 
  Country: None (occurrence: None)
  Receive Date: 20110203
  Receipt Date: 20110119
  Transmission Date: 20110831
  Serious: Yes (Death)
  Sender: FDA-Public Use
  Company Number: AUR-APL-2011-00148

PATIENT
  Age: 27 Year
  Sex: Female

DRUGS (7)
  1. IBUPROFEN [Suspect]
     Dosage: ORAL
     Route: 048
  2. OXYCODONE [Suspect]
     Dosage: ORAL
     Route: 048
  3. TOPIRAMATE TABLET [Suspect]
     Dosage: ORAL
     Route: 048
  4. OSELTAMIVIR [Suspect]
     Dosage: ORAL
     Route: 048
  5. OXYCODONE/HYDROCODONE [Suspect]
     Dosage: ORAL
     Route: 048
  6. ACETAMINOPHEN [Suspect]
     Dosage: ORAL
     Route: 048
  7. SALICYLATES [Suspect]

REACTIONS (1)
  - TOXICITY TO VARIOUS AGENTS [None]
